FAERS Safety Report 7304033-7 (Version None)
Quarter: 2011Q1

REPORT INFORMATION
  Report Type: 
  Country: None (occurrence: None)
  Receive Date: 20110221
  Receipt Date: 20110215
  Transmission Date: 20110831
  Serious: Yes (Other)
  Sender: FDA-Public Use
  Company Number: CA-ABBOTT-11P-028-0705634-00

PATIENT
  Sex: Female
  Weight: 78.1 kg

DRUGS (5)
  1. HUMIRA [Suspect]
     Indication: CROHN'S DISEASE
     Route: 058
     Dates: start: 20090914
  2. CODEINE [Concomitant]
     Indication: PRODUCT USED FOR UNKNOWN INDICATION
  3. SYNTOCINON [Concomitant]
     Indication: INDUCED LABOUR
  4. MAGNESIUM SULFATE [Concomitant]
     Indication: PRODUCT USED FOR UNKNOWN INDICATION
  5. M-M-R II [Concomitant]
     Indication: IMMUNISATION

REACTIONS (4)
  - PRE-ECLAMPSIA [None]
  - PERINEAL LACERATION [None]
  - HEADACHE [None]
  - MATERNAL DISTRESS DURING LABOUR [None]
